FAERS Safety Report 16087133 (Version 1)
Quarter: 2019Q1

REPORT INFORMATION
  Report Type: Spontaneous
  Country: US (occurrence: US)
  Receive Date: 20190319
  Receipt Date: 20190319
  Transmission Date: 20190418
  Serious: No
  Sender: FDA-Public Use
  Company Number: US-LUPIN PHARMACEUTICALS INC.-2019-00888

PATIENT
  Sex: Female
  Weight: 53.52 kg

DRUGS (3)
  1. ADVIL (MEFENAMIC ACID) [Concomitant]
     Active Substance: MEFENAMIC ACID
     Indication: PRODUCT USED FOR UNKNOWN INDICATION
     Dosage: UNK
     Route: 065
  2. HYDROCODONE BITARTRATE AND ACETAMINOPHEN TABLETS USP, 5 MG/325 MG [Suspect]
     Active Substance: ACETAMINOPHEN\HYDROCODONE BITARTRATE
     Indication: PARAGANGLION NEOPLASM
     Dosage: 2 TABLETS AT 6PM, 1 1/2 TABLETS BETWEEN 12 MIDNIGHT + 1 AM, AND 1 1/2 TABLETS AT 7 AM
     Route: 048
  3. HYDROCODONE BITARTRATE AND ACETAMINOPHEN TABLETS USP, 5 MG/325 MG [Suspect]
     Active Substance: ACETAMINOPHEN\HYDROCODONE BITARTRATE
     Indication: METASTASES TO SPINE
     Dosage: 20MG/1300 MG, BID (01-02 TABLETS)
     Route: 048
     Dates: start: 20190117

REACTIONS (8)
  - Anger [Not Recovered/Not Resolved]
  - Drug ineffective [Unknown]
  - Headache [Not Recovered/Not Resolved]
  - Irritability [Not Recovered/Not Resolved]
  - Nausea [Not Recovered/Not Resolved]
  - Malaise [Unknown]
  - Foreign body in respiratory tract [Not Recovered/Not Resolved]
  - Dry eye [Not Recovered/Not Resolved]
